FAERS Safety Report 12204819 (Version 1)
Quarter: 2016Q1

REPORT INFORMATION
  Report Type: Spontaneous
  Country: US (occurrence: US)
  Receive Date: 20160323
  Receipt Date: 20160323
  Transmission Date: 20160526
  Serious: Yes (Death, Hospitalization, Other)
  Sender: FDA-Public Use
  Company Number: US-PFIZER INC-2016167267

PATIENT
  Age: 6 Year
  Sex: Male

DRUGS (1)
  1. CHLOROMYCETIN [Suspect]
     Active Substance: CHLORAMPHENICOL
     Dosage: 250 MG, 4X/DAY
     Dates: start: 195107

REACTIONS (2)
  - Cerebral haemorrhage [Fatal]
  - Aplastic anaemia [Fatal]

NARRATIVE: CASE EVENT DATE: 195108
